FAERS Safety Report 9258430 (Version 1)
Quarter: 2013Q1

REPORT INFORMATION
  Report Type: Spontaneous
  Country: US (occurrence: None)
  Receive Date: 20121212
  Receipt Date: 20121212
  Transmission Date: 20140127
  Serious: No
  Sender: FDA-Public Use
  Company Number: 1211USA000450

PATIENT
  Age: 50 Year
  Sex: Male

DRUGS (3)
  1. VICTRELIS [Suspect]
     Indication: HEPATITIS C
     Route: 048
     Dates: start: 201208
  2. RIBAPAK [Suspect]
     Route: 048
     Dates: start: 201208
  3. PEGASYS [Suspect]
     Route: 058
     Dates: start: 201208

REACTIONS (5)
  - Diarrhoea [None]
  - Nausea [None]
  - Vomiting [None]
  - Fatigue [None]
  - Fatigue [None]
